FAERS Safety Report 18560816 (Version 1)
Quarter: 2020Q4

REPORT INFORMATION
  Report Type: Spontaneous
  Country: US (occurrence: US)
  Receive Date: 20201130
  Receipt Date: 20201130
  Transmission Date: 20210114
  Serious: Yes (Other)
  Sender: FDA-Public Use
  Company Number: US-ELI_LILLY_AND_COMPANY-US202011009004

PATIENT
  Age: 36 Year
  Sex: Female

DRUGS (4)
  1. HUMALOG KWIKPEN [Suspect]
     Active Substance: INSULIN LISPRO
     Indication: TYPE 2 DIABETES MELLITUS
     Dosage: 2-6 U, PRN
     Route: 058
     Dates: start: 202010
  2. OXYGEN. [Concomitant]
     Active Substance: OXYGEN
     Dosage: DOSE DECREASED, UNKNOWN
     Route: 065
  3. OXYGEN. [Concomitant]
     Active Substance: OXYGEN
     Indication: LUNG DISORDER
     Dosage: UNK UNK, UNKNOWN
     Route: 065
     Dates: start: 202009
  4. BASAGLAR [Suspect]
     Active Substance: INSULIN GLARGINE
     Indication: TYPE 2 DIABETES MELLITUS
     Dosage: 16 U, DAILY (8 UNITS AND THEN ADDED 2 UNITS EVERY 4 DAYS TILL 16U)
     Route: 058
     Dates: start: 202010

REACTIONS (13)
  - Memory impairment [Unknown]
  - Diarrhoea [Unknown]
  - Somnolence [Unknown]
  - Irritability [Unknown]
  - Hypophagia [Unknown]
  - Visual impairment [Unknown]
  - Blood glucose increased [Unknown]
  - Confusional state [Unknown]
  - Cough [Unknown]
  - Nausea [Unknown]
  - Headache [Unknown]
  - Dyspnoea [Unknown]
  - Hypersomnia [Unknown]

NARRATIVE: CASE EVENT DATE: 202010
